FAERS Safety Report 11276961 (Version 1)
Quarter: 2015Q3

REPORT INFORMATION
  Report Type: Other
  Country: US (occurrence: US)
  Receive Date: 20150716
  Receipt Date: 20150716
  Transmission Date: 20151125
  Serious: Yes (Other)
  Sender: FDA-Public Use
  Company Number: US-MUNDIPHARMA DS AND PHARMACOVIGILANCE-DEU-2015-0016990

PATIENT
  Age: 23 Year
  Sex: Female

DRUGS (2)
  1. LIDOCAINE-EPINEPHRINE [Suspect]
     Active Substance: EPINEPHRINE\LIDOCAINE
     Indication: EPIDURAL ANAESTHESIA
     Dosage: UNK UNK, SEE TEXT
     Route: 008
  2. MORPHINE SULFATE (SIMILAR TO NDA 19-516) [Suspect]
     Active Substance: MORPHINE SULFATE
     Indication: EPIDURAL ANAESTHESIA
     Dosage: UNK UNK, SEE TEXT
     Route: 008

REACTIONS (7)
  - Quadriplegia [Recovering/Resolving]
  - Vomiting [Recovered/Resolved]
  - Coma [Recovered/Resolved]
  - Anaesthetic complication [None]
  - Unresponsive to stimuli [Recovered/Resolved]
  - Areflexia [Recovered/Resolved]
  - Pupil fixed [Recovered/Resolved]
